FAERS Safety Report 22327973 (Version 1)
Quarter: 2023Q2

REPORT INFORMATION
  Report Type: Spontaneous
  Country: US (occurrence: US)
  Receive Date: 20230516
  Receipt Date: 20230516
  Transmission Date: 20230721
  Serious: No
  Sender: FDA-Public Use
  Company Number: US-RADIUS HEALTH INC.-2023US001727

PATIENT
  Sex: Female

DRUGS (6)
  1. TYMLOS [Suspect]
     Active Substance: ABALOPARATIDE
     Indication: Illness
     Dosage: 80 MICROGRAM, QD
     Route: 058
     Dates: start: 20230329
  2. CALCIUM [Concomitant]
     Active Substance: CALCIUM
     Indication: Product used for unknown indication
  3. ALEVE [Concomitant]
     Active Substance: NAPROXEN SODIUM
     Indication: Product used for unknown indication
  4. MAXALT [Concomitant]
     Active Substance: RIZATRIPTAN BENZOATE
     Indication: Product used for unknown indication
  5. FROVA [Concomitant]
     Active Substance: FROVATRIPTAN SUCCINATE
     Indication: Product used for unknown indication
  6. LISINOPRIL [Concomitant]
     Active Substance: LISINOPRIL
     Indication: Product used for unknown indication

REACTIONS (2)
  - Pelvic pain [Recovered/Resolved]
  - Back pain [Recovered/Resolved]
